FAERS Safety Report 4330484-9 (Version None)
Quarter: 2004Q1

REPORT INFORMATION
  Report Type: 
  Country: None (occurrence: None)
  Receive Date: 20040329
  Receipt Date: 20040318
  Transmission Date: 20041129
  Serious: Yes (Life-Threatening)
  Sender: FDA-Public Use
  Company Number: 2004JP000422

PATIENT
  Age: 43 Year
  Sex: Male

DRUGS (1)
  1. PROTOPIC [Suspect]
     Indication: DERMATITIS ATOPIC
     Dosage: 0.10%, TOPICAL
     Route: 061
     Dates: start: 20000329

REACTIONS (5)
  - CARCINOMA [None]
  - CONDITION AGGRAVATED [None]
  - DERMATITIS ATOPIC [None]
  - ECZEMA [None]
  - SWEAT GLAND TUMOUR [None]
